FAERS Safety Report 6988295-1 (Version None)
Quarter: 2010Q3

REPORT INFORMATION
  Report Type: 
  Country: None (occurrence: None)
  Receive Date: 20100830
  Receipt Date: 20100719
  Transmission Date: 20110219
  Serious: No
  Sender: FDA-Public Use
  Company Number: 2010090737

PATIENT
  Age: 77 Year
  Sex: Male
  Weight: 65.8 kg

DRUGS (6)
  1. TOVIAZ [Suspect]
     Indication: POLLAKIURIA
     Dosage: 4 MG, DAILY, ORAL
     Route: 048
     Dates: start: 20100715
  2. LANTUS [Suspect]
  3. HUMALOG [Concomitant]
  4. VALSARTAN [Suspect]
  5. LOVASTATIN [Concomitant]
  6. NAPROXEN [Concomitant]

REACTIONS (1)
  - DRUG INEFFECTIVE [None]
